FAERS Safety Report 15565251 (Version 13)
Quarter: 2024Q2

REPORT INFORMATION
  Report Type: Report from Study
  Country: CA (occurrence: CA)
  Receive Date: 20181030
  Receipt Date: 20240529
  Transmission Date: 20240715
  Serious: Yes (Hospitalization, Other)
  Sender: FDA-Public Use
  Company Number: PHHY2018CA052062

PATIENT
  Age: 43 Year
  Sex: Female

DRUGS (11)
  1. COSENTYX [Suspect]
     Active Substance: SECUKINUMAB
     Indication: Psoriasis
     Dosage: 300 MG, QW (0, 1, 2, AND 3 WEEKLY)
     Route: 058
     Dates: start: 20180901
  2. COSENTYX [Suspect]
     Active Substance: SECUKINUMAB
     Indication: Psoriatic arthropathy
     Dosage: 300 MG, QW (0, 1, 2, AND 3 WEEKLY)
     Route: 058
     Dates: start: 20180908
  3. COSENTYX [Suspect]
     Active Substance: SECUKINUMAB
     Dosage: 300 MG, QMO
     Route: 058
     Dates: start: 20180929
  4. COSENTYX [Suspect]
     Active Substance: SECUKINUMAB
     Dosage: 300 MG, QMO
     Route: 058
     Dates: start: 20190114
  5. COSENTYX [Suspect]
     Active Substance: SECUKINUMAB
     Dosage: 300 MG, QMO
     Route: 058
     Dates: start: 20190610
  6. COSENTYX [Suspect]
     Active Substance: SECUKINUMAB
     Dosage: 300MG MONTHLY FOR 5 MONTHS, THEN DECREASE TO 300MG ONCE EVERY 2 MONTHS X 2 MONTHS, THEN DISCONTINUE
     Route: 058
  7. COSENTYX [Suspect]
     Active Substance: SECUKINUMAB
     Dosage: 300 MG, QMO
     Route: 058
     Dates: start: 20180901, end: 20201024
  8. HEPATITIS B VIRUS VACCINE [Suspect]
     Active Substance: HEPATITIS B VIRUS VACCINE
     Indication: Product used for unknown indication
     Dosage: UNK
     Route: 065
  9. METHOTREXATE [Concomitant]
     Active Substance: METHOTREXATE
     Indication: Product used for unknown indication
     Dosage: UNK
     Route: 065
  10. PROTOPIC [Concomitant]
     Active Substance: TACROLIMUS
     Indication: Product used for unknown indication
     Dosage: UNK
     Route: 065
  11. CANDESARTAN [Concomitant]
     Active Substance: CANDESARTAN
     Indication: Product used for unknown indication
     Dosage: UNK
     Route: 065

REACTIONS (33)
  - Ehlers-Danlos syndrome [Unknown]
  - Cardiac disorder [Unknown]
  - Lung disorder [Unknown]
  - Pain [Unknown]
  - Pulmonary embolism [Unknown]
  - Malaise [Unknown]
  - Pain in jaw [Unknown]
  - Pain in extremity [Unknown]
  - Chest pain [Unknown]
  - Epistaxis [Unknown]
  - Reaction to preservatives [Unknown]
  - Contusion [Unknown]
  - Somnolence [Unknown]
  - Fatigue [Unknown]
  - Rash [Unknown]
  - Wound [Recovered/Resolved]
  - Sleep disorder [Unknown]
  - Bursitis [Unknown]
  - Arthralgia [Unknown]
  - Neck pain [Unknown]
  - Arthropod bite [Unknown]
  - Blood pressure increased [Unknown]
  - Migraine [Unknown]
  - Hypersomnia [Unknown]
  - Psoriasis [Unknown]
  - Disease recurrence [Unknown]
  - Skin burning sensation [Unknown]
  - Skin fissures [Unknown]
  - Pain of skin [Unknown]
  - Insomnia [Unknown]
  - Gout [Unknown]
  - Therapeutic product effect decreased [Unknown]
  - Wrong product procured [Unknown]

NARRATIVE: CASE EVENT DATE: 20181020
